FAERS Safety Report 5189467-1 (Version None)
Quarter: 2006Q4

REPORT INFORMATION
  Report Type: 
  Country: None (occurrence: None)
  Receive Date: 20061221
  Receipt Date: 20060627
  Transmission Date: 20070319
  Serious: No
  Sender: FDA-Public Use
  Company Number: US-AMGEN-KDL184502

PATIENT
  Sex: Female
  Weight: 72.6 kg

DRUGS (7)
  1. ENBREL [Suspect]
     Indication: PSORIASIS
     Dates: start: 20041221, end: 20050815
  2. MAXZIDE [Concomitant]
  3. PAXIL [Concomitant]
  4. ASPIRIN [Concomitant]
  5. VITAMINS [Concomitant]
  6. ATIVAN [Concomitant]
  7. PRILOSEC [Concomitant]

REACTIONS (1)
  - HERPES ZOSTER [None]
